FAERS Safety Report 4728151-2 (Version None)
Quarter: 2005Q3

REPORT INFORMATION
  Report Type: 
  Country: None (occurrence: None)
  Receive Date: 20050728
  Receipt Date: 20050728
  Transmission Date: 20060218
  Serious: No
  Sender: FDA-Public Use
  Company Number: None

PATIENT
  Age: 36 Year
  Sex: Female
  Weight: 84.8226 kg

DRUGS (2)
  1. DURAGESIC-100 [Suspect]
     Indication: FIBROMYALGIA
     Dosage: 100 MCG Q 72 HOURS TOPICAL
     Route: 061
     Dates: start: 20040701
  2. DURAGESIC-100 [Suspect]
     Indication: INTERVERTEBRAL DISC DEGENERATION
     Dosage: 100 MCG Q 72 HOURS TOPICAL
     Route: 061
     Dates: start: 20040701

REACTIONS (5)
  - APPLICATION SITE REACTION [None]
  - APPLICATION SITE VESICLES [None]
  - DRUG INEFFECTIVE [None]
  - SKIN IRRITATION [None]
  - SKIN LACERATION [None]
